FAERS Safety Report 19321414 (Version 2)
Quarter: 2021Q2

REPORT INFORMATION
  Report Type: Spontaneous
  Country: PH (occurrence: PH)
  Receive Date: 20210527
  Receipt Date: 20210625
  Transmission Date: 20210717
  Serious: Yes (Death)
  Sender: FDA-Public Use
  Company Number: PH-JNJFOC-20210545094

PATIENT
  Age: 73 Year
  Sex: Male

DRUGS (3)
  1. TRAMADOL/APAP [Suspect]
     Active Substance: ACETAMINOPHEN\TRAMADOL
     Indication: PAIN
     Route: 048
     Dates: start: 20210519, end: 20210519
  2. DOLCET [Suspect]
     Active Substance: ACETAMINOPHEN\TRAMADOL HYDROCHLORIDE
     Indication: PAIN
     Route: 048
     Dates: start: 20210519
  3. COVID?19 VACCINE NOS. [Suspect]
     Active Substance: COVID-19 VACCINE NOS
     Route: 065
     Dates: start: 20210519

REACTIONS (5)
  - Dyspnoea [Fatal]
  - Hyperhidrosis [Unknown]
  - Pain [Fatal]
  - Vomiting [Fatal]
  - Dizziness [Unknown]

NARRATIVE: CASE EVENT DATE: 20210519
